FAERS Safety Report 8945222 (Version 3)
Quarter: 2013Q1

REPORT INFORMATION
  Report Type: Spontaneous
  Country: US (occurrence: US)
  Receive Date: 20121204
  Receipt Date: 20130107
  Transmission Date: 20140127
  Serious: Yes (Other)
  Sender: FDA-Public Use
  Company Number: US-AMGEN-USASP2012074091

PATIENT
  Age: 70 Year
  Sex: Female
  Weight: 95.24 kg

DRUGS (9)
  1. ENBREL [Suspect]
     Indication: RHEUMATOID ARTHRITIS
     Dosage: 50 MG, QWK
     Dates: start: 20070701
  2. CELEBREX [Concomitant]
     Dosage: 200 MG, BID OR AS NEEDED(PRN)
  3. TRAMADOL [Concomitant]
     Dosage: 50 MG, QD
  4. THYROID [Concomitant]
     Dosage: 30 MG, QD
  5. LANSOPRAZOLE [Concomitant]
     Dosage: 30 MG, QD
  6. BENICAR [Concomitant]
     Dosage: 40 MG, QD
  7. VIT D3 [Concomitant]
     Dosage: 5000 UNIT, QD
  8. FOLIC ACID [Concomitant]
     Dosage: 800 MUG, QD
  9. VIT D [Concomitant]
     Dosage: UNK

REACTIONS (26)
  - Knee arthroplasty [Recovered/Resolved]
  - Basal cell carcinoma [Unknown]
  - Diverticulitis [Unknown]
  - Fatigue [Unknown]
  - Pain in extremity [Not Recovered/Not Resolved]
  - Contusion [Not Recovered/Not Resolved]
  - Thermal burn [Unknown]
  - Mobility decreased [Unknown]
  - Pyrexia [Unknown]
  - Cough [Not Recovered/Not Resolved]
  - Headache [Unknown]
  - Sinus disorder [Unknown]
  - Musculoskeletal stiffness [Recovered/Resolved]
  - Arthralgia [Not Recovered/Not Resolved]
  - Joint crepitation [Unknown]
  - Gastrointestinal disorder [Unknown]
  - Cough [Not Recovered/Not Resolved]
  - Erythema [Unknown]
  - Gastrooesophageal reflux disease [Unknown]
  - Malaise [Unknown]
  - Local swelling [Recovered/Resolved]
  - Rash [Unknown]
  - Osteoarthritis [Unknown]
  - Obstructive airways disorder [Unknown]
  - Menopausal symptoms [Unknown]
  - Injection site reaction [Unknown]
